FAERS Safety Report 17529217 (Version 3)
Quarter: 2020Q4

REPORT INFORMATION
  Report Type: Report from Study
  Country: CA (occurrence: CA)
  Receive Date: 20200311
  Receipt Date: 20201217
  Transmission Date: 20210113
  Serious: Yes (Hospitalization)
  Sender: FDA-Public Use
  Company Number: CA-GLAXOSMITHKLINE-CA2020AMR042677

PATIENT
  Sex: Female

DRUGS (3)
  1. MEPOLIZUMAB [Suspect]
     Active Substance: MEPOLIZUMAB
     Indication: ASTHMA
     Dosage: 100 MG, Z; MONTHLY
     Route: 042
     Dates: start: 20191031
  2. MEPOLIZUMAB [Suspect]
     Active Substance: MEPOLIZUMAB
     Dosage: 100 MG, Z MONTHLY
     Route: 042
  3. VENTOLIN [Suspect]
     Active Substance: ALBUTEROL SULFATE
     Indication: ASTHMA
     Dosage: UNK

REACTIONS (11)
  - Asthma [Unknown]
  - Thalassaemia [Unknown]
  - Cough [Unknown]
  - Chest pain [Unknown]
  - Haemoglobinopathy [Unknown]
  - Blood count abnormal [Unknown]
  - Asthenia [Unknown]
  - Hospitalisation [Unknown]
  - Wheezing [Unknown]
  - Dizziness [Unknown]
  - Product use issue [Unknown]
